FAERS Safety Report 24270068 (Version 1)
Quarter: 2024Q3

REPORT INFORMATION
  Report Type: Spontaneous
  Country: US (occurrence: None)
  Receive Date: 20240829
  Receipt Date: 20240829
  Transmission Date: 20241016
  Serious: Yes (Life-Threatening)
  Sender: Public
  Company Number: None

PATIENT
  Age: 75 Year
  Sex: Female

DRUGS (1)
  1. XOLAIR [Suspect]
     Active Substance: OMALIZUMAB
     Indication: Asthma
     Dosage: OTHER FREQUENCY : Q4WEEKS;?
     Route: 058
     Dates: start: 20240826, end: 20240826

REACTIONS (3)
  - Dry throat [None]
  - Throat irritation [None]
  - Swollen tongue [None]

NARRATIVE: CASE EVENT DATE: 20240826
